FAERS Safety Report 10390728 (Version 1)
Quarter: 2014Q3

REPORT INFORMATION
  Report Type: Spontaneous
  Country: GB (occurrence: None)
  Receive Date: 20140814
  Receipt Date: 20140814
  Transmission Date: 20150326
  Serious: Yes (Congenital Anomaly)
  Sender: FDA-Public Use
  Company Number: FK201403209

PATIENT
  Age: 07 Month
  Sex: Female

DRUGS (1)
  1. VALPROATE (MANUFACTURER UNKNOWN) (VALPROATE SODIUM) (VALPROATE SODIUM) [Suspect]
     Active Substance: VALPROATE SODIUM
     Indication: EPILEPSY
     Route: 064

REACTIONS (3)
  - Foetal anticonvulsant syndrome [None]
  - Choroidal coloboma [None]
  - Foetal exposure during pregnancy [None]
